FAERS Safety Report 20639013 (Version 2)
Quarter: 2023Q1

REPORT INFORMATION
  Report Type: Spontaneous
  Country: US (occurrence: US)
  Receive Date: 20220326
  Receipt Date: 20230126
  Transmission Date: 20230418
  Serious: Yes (Hospitalization, Other)
  Sender: FDA-Public Use
  Company Number: US-BRISTOL-MYERS SQUIBB COMPANY-2022-010399

PATIENT
  Age: 75 Year
  Sex: Male

DRUGS (2)
  1. ELIQUIS [Suspect]
     Active Substance: APIXABAN
     Indication: Cerebrovascular accident prophylaxis
     Dosage: 1 TAB DAILY.
     Route: 048
     Dates: start: 20211214
  2. ELIQUIS [Suspect]
     Active Substance: APIXABAN
     Dosage: 1 TAB DAILY.
     Route: 048

REACTIONS (2)
  - Neoplasm malignant [Unknown]
  - Off label use [Unknown]

NARRATIVE: CASE EVENT DATE: 20220316
